FAERS Safety Report 25571231 (Version 1)
Quarter: 2025Q3

REPORT INFORMATION
  Report Type: Spontaneous
  Country: US (occurrence: US)
  Receive Date: 20250717
  Receipt Date: 20250717
  Transmission Date: 20251021
  Serious: No
  Sender: APOTEX
  Company Number: US-APOTEX-2025AP009585

PATIENT
  Age: 18 Year
  Sex: Male

DRUGS (6)
  1. ZONISAMIDE [Suspect]
     Active Substance: ZONISAMIDE
     Indication: Epilepsy
     Dosage: 200 MILLIGRAM, BID
     Route: 065
  2. CANNABIDIOL [Concomitant]
     Active Substance: CANNABIDIOL
     Indication: Epilepsy
     Route: 065
  3. CLOBAZAM [Concomitant]
     Active Substance: CLOBAZAM
     Indication: Epilepsy
     Route: 065
  4. FENFLURAMINE [Concomitant]
     Active Substance: FENFLURAMINE
     Indication: Epilepsy
     Route: 065
  5. LEVETIRACETAM [Concomitant]
     Active Substance: LEVETIRACETAM
     Indication: Epilepsy
     Route: 065
  6. PERAMPANEL [Concomitant]
     Active Substance: PERAMPANEL
     Indication: Epilepsy
     Route: 065

REACTIONS (1)
  - Catatonia [Not Recovered/Not Resolved]
